FAERS Safety Report 14986542 (Version 2)
Quarter: 2018Q3

REPORT INFORMATION
  Report Type: Spontaneous
  Country: US (occurrence: US)
  Receive Date: 20180608
  Receipt Date: 20180701
  Transmission Date: 20181010
  Serious: No
  Sender: FDA-Public Use
  Company Number: US-AMGEN-USASP2018076332

PATIENT
  Sex: Female

DRUGS (5)
  1. MTX [Suspect]
     Active Substance: METHOTREXATE SODIUM
     Indication: JUVENILE IDIOPATHIC ARTHRITIS
  2. ENBREL [Suspect]
     Active Substance: ETANERCEPT
     Indication: RHEUMATOID ARTHRITIS
     Dosage: UNK
     Route: 065
     Dates: start: 201801, end: 2018
  3. MTX [Suspect]
     Active Substance: METHOTREXATE SODIUM
     Indication: RHEUMATOID ARTHRITIS
     Dosage: UNK
     Route: 065
     Dates: start: 201801, end: 2018
  4. ENBREL [Suspect]
     Active Substance: ETANERCEPT
     Indication: JUVENILE IDIOPATHIC ARTHRITIS
  5. XELJANZ XR [Concomitant]
     Active Substance: TOFACITINIB CITRATE
     Dosage: 11 MG, QD
     Route: 048

REACTIONS (1)
  - Drug effect incomplete [Unknown]

NARRATIVE: CASE EVENT DATE: 2018
